FAERS Safety Report 15846864 (Version 1)
Quarter: 2019Q1

REPORT INFORMATION
  Report Type: Spontaneous
  Country: GB (occurrence: GB)
  Receive Date: 20190121
  Receipt Date: 20190121
  Transmission Date: 20190417
  Serious: Yes (Other)
  Sender: FDA-Public Use
  Company Number: GB-TEVA-2019-GB-1001065

PATIENT
  Age: 90 Year
  Sex: Male
  Weight: 93 kg

DRUGS (2)
  1. DOXYCYCLINE. [Suspect]
     Active Substance: DOXYCYCLINE
     Indication: INFECTED CYST
     Dosage: 1 DOSAGE FORMS DAILY; 200MG STAT THEN 1 DAILY AFTER.
     Route: 048
     Dates: start: 20181005, end: 20181012
  2. INDAPAMIDE. [Concomitant]
     Active Substance: INDAPAMIDE
     Route: 065

REACTIONS (1)
  - Renal impairment [Recovered/Resolved with Sequelae]

NARRATIVE: CASE EVENT DATE: 20181025
